FAERS Safety Report 7209234-4 (Version None)
Quarter: 2010Q4

REPORT INFORMATION
  Report Type: 
  Country: None (occurrence: None)
  Receive Date: 20101210
  Receipt Date: 20101210
  Transmission Date: 20110411
  Serious: Yes (Hospitalization)
  Sender: FDA-Public Use
  Company Number: 016875

PATIENT
  Sex: Female
  Weight: 69.5 kg

DRUGS (14)
  1. CIMZIA [Suspect]
     Indication: RHEUMATOID ARTHRITIS
     Dosage: (400 MG 1X/2 WEEKS SUBCUTANEOUS) ; (200 MG 1X/2 WEEKS SUBCUTANEOUS)
     Route: 058
     Dates: start: 20060829, end: 20071226
  2. CIMZIA [Suspect]
     Indication: RHEUMATOID ARTHRITIS
     Dosage: (400 MG 1X/2 WEEKS SUBCUTANEOUS) ; (200 MG 1X/2 WEEKS SUBCUTANEOUS)
     Route: 058
     Dates: start: 20080110, end: 20100526
  3. METHOTREXATE [Concomitant]
  4. FOLIC ACID [Concomitant]
  5. MELOXICAM [Concomitant]
  6. PREDNISONE [Concomitant]
  7. HYDROCORTISONE [Concomitant]
  8. REN-HUR [Concomitant]
  9. CARVEDILOL [Concomitant]
  10. FLUOXETINE HCL [Concomitant]
  11. DORIXINA RELAX [Concomitant]
  12. SYSTANE /02034401/ [Concomitant]
  13. PANTOPRAZOLE [Concomitant]
  14. ENALAPRIL [Concomitant]

REACTIONS (5)
  - CHEST PAIN [None]
  - GASTROENTERITIS [None]
  - HYPERGLYCAEMIA [None]
  - HYPERTENSION [None]
  - ISCHAEMIC CARDIOMYOPATHY [None]
